FAERS Safety Report 6811499-5 (Version None)
Quarter: 2010Q2

REPORT INFORMATION
  Report Type: 
  Country: None (occurrence: None)
  Receive Date: 20100625
  Receipt Date: 20100610
  Transmission Date: 20101027
  Serious: Yes (Hospitalization, Other)
  Sender: FDA-Public Use
  Company Number: 1000014604

PATIENT
  Age: 16 Year
  Sex: Female
  Weight: 80 kg

DRUGS (2)
  1. ESCITALOPRAM [Suspect]
     Dosage: 1000 MG, ONCE, ORAL
     Route: 048
     Dates: start: 20100610, end: 20100610
  2. DIPIPERON (40 MILLIGRAM, TABLETS) [Suspect]
     Dosage: 1600 MG, ONCE, ORAL
     Route: 048
     Dates: start: 20100610, end: 20100610

REACTIONS (5)
  - FATIGUE [None]
  - MIOSIS [None]
  - MULTIPLE DRUG OVERDOSE INTENTIONAL [None]
  - SUICIDE ATTEMPT [None]
  - VOMITING [None]
